FAERS Safety Report 13501528 (Version 1)
Quarter: 2017Q2

REPORT INFORMATION
  Report Type: Spontaneous
  Country: US (occurrence: US)
  Receive Date: 20170501
  Receipt Date: 20170501
  Transmission Date: 20170830
  Serious: Yes (Other)
  Sender: FDA-Public Use
  Company Number: US-BEH-2017079861

PATIENT
  Sex: Male
  Weight: 107.3 kg

DRUGS (42)
  1. HIZENTRA [Suspect]
     Active Substance: HUMAN IMMUNOGLOBULIN G
     Dosage: UNK
     Route: 058
  2. SYNTHROID [Concomitant]
     Active Substance: LEVOTHYROXINE SODIUM
  3. XANAX [Concomitant]
     Active Substance: ALPRAZOLAM
  4. ONE-A-DAY MEN^S [Concomitant]
  5. WARFARIN [Concomitant]
     Active Substance: WARFARIN
  6. IBUPROFEN. [Concomitant]
     Active Substance: IBUPROFEN
  7. ASPIRIN. [Concomitant]
     Active Substance: ASPIRIN
  8. MOBIC [Concomitant]
     Active Substance: MELOXICAM
  9. FLAGYL [Concomitant]
     Active Substance: METRONIDAZOLE\METRONIDAZOLE HYDROCHLORIDE
  10. CIPROFLOXACIN. [Concomitant]
     Active Substance: CIPROFLOXACIN
  11. VITAMIN B12 [Concomitant]
     Active Substance: CYANOCOBALAMIN
  12. GLIPIZIDE. [Concomitant]
     Active Substance: GLIPIZIDE
  13. MORPHINE [Concomitant]
     Active Substance: MORPHINE
  14. FERROUS SULFATE. [Concomitant]
     Active Substance: FERROUS SULFATE
  15. HIZENTRA [Suspect]
     Active Substance: HUMAN IMMUNOGLOBULIN G
     Indication: IMMUNODEFICIENCY COMMON VARIABLE
     Dosage: 8 G, UNK
     Route: 058
     Dates: start: 20110310
  16. RANITIDINE. [Concomitant]
     Active Substance: RANITIDINE
  17. OXYGEN. [Concomitant]
     Active Substance: OXYGEN
  18. ZOLOFT [Concomitant]
     Active Substance: SERTRALINE HYDROCHLORIDE
  19. ALLOPURINOL. [Concomitant]
     Active Substance: ALLOPURINOL
  20. BUSPIRONE [Concomitant]
     Active Substance: BUSPIRONE HYDROCHLORIDE
  21. DIPHENHYDRAMINE. [Concomitant]
     Active Substance: DIPHENHYDRAMINE
  22. LEVOFLOXACIN. [Concomitant]
     Active Substance: LEVOFLOXACIN
  23. TYLENOL WITH CODEINE [Concomitant]
     Active Substance: ACETAMINOPHEN\CODEINE PHOSPHATE
  24. INSULIN [Concomitant]
     Active Substance: INSULIN NOS
  25. ZOFRAN [Concomitant]
     Active Substance: ONDANSETRON HYDROCHLORIDE
  26. CEPHALEXIN                         /00145501/ [Concomitant]
     Active Substance: CEPHALEXIN
  27. REQUIP [Concomitant]
     Active Substance: ROPINIROLE HYDROCHLORIDE
  28. PRAVACHOL [Concomitant]
     Active Substance: PRAVASTATIN SODIUM
  29. ADVAIR HFA [Concomitant]
     Active Substance: FLUTICASONE PROPIONATE\SALMETEROL XINAFOATE
  30. PRINIVIL [Concomitant]
     Active Substance: LISINOPRIL
  31. METAMUCIL [Concomitant]
     Active Substance: PLANTAGO SEED
  32. METFORMIN [Concomitant]
     Active Substance: METFORMIN HYDROCHLORIDE
  33. LIDOCAINE/PRILOCAINE [Concomitant]
     Active Substance: LIDOCAINE\PRILOCAINE
  34. EPINEPHRINE. [Concomitant]
     Active Substance: EPINEPHRINE
  35. LOSARTAN POTASSIUM. [Concomitant]
     Active Substance: LOSARTAN POTASSIUM
  36. CLONIDINE. [Concomitant]
     Active Substance: CLONIDINE
  37. FENTANYL. [Concomitant]
     Active Substance: FENTANYL
  38. LASIX [Concomitant]
     Active Substance: FUROSEMIDE
  39. ALBUTEROL                          /00139501/ [Concomitant]
     Active Substance: ALBUTEROL
  40. ACETAMINOPHEN. [Concomitant]
     Active Substance: ACETAMINOPHEN
  41. AMBIEN [Concomitant]
     Active Substance: ZOLPIDEM TARTRATE
  42. ALDACTONE [Concomitant]
     Active Substance: SPIRONOLACTONE

REACTIONS (2)
  - Cancer surgery [Unknown]
  - Neoplasm malignant [Unknown]
